FAERS Safety Report 6772510-3 (Version None)
Quarter: 2010Q2

REPORT INFORMATION
  Report Type: 
  Country: None (occurrence: None)
  Receive Date: 20100616
  Receipt Date: 20090908
  Transmission Date: 20101027
  Serious: No
  Sender: FDA-Public Use
  Company Number: US-ASTRAZENECA-2009SE11878

PATIENT
  Age: 6 Year
  Sex: Male
  Weight: 19.1 kg

DRUGS (2)
  1. PULMICORT RESPULES [Suspect]
     Route: 055
     Dates: start: 20060101, end: 20070101
  2. PULMICORT RESPULES [Suspect]
     Route: 055
     Dates: start: 20090201

REACTIONS (1)
  - DYSPNOEA [None]
